FAERS Safety Report 7117836-9 (Version None)
Quarter: 2010Q4

REPORT INFORMATION
  Report Type: 
  Country: None (occurrence: None)
  Receive Date: 20101118
  Receipt Date: 20101118
  Transmission Date: 20110411
  Serious: No
  Sender: FDA-Public Use
  Company Number: None

PATIENT
  Sex: Male
  Weight: 83.9154 kg

DRUGS (1)
  1. DORZOLAMIDE HCL AND TIMOLOL MALEATE [Suspect]
     Dosage: ONE DROP EACH EYE-TWICE DAILY
     Route: 047

REACTIONS (2)
  - PRODUCT PACKAGING QUANTITY ISSUE [None]
  - PRODUCT SUBSTITUTION ISSUE [None]
